FAERS Safety Report 7717963-9 (Version None)
Quarter: 2011Q3

REPORT INFORMATION
  Report Type: 
  Country: None (occurrence: None)
  Receive Date: 20110830
  Receipt Date: 20110824
  Transmission Date: 20111222
  Serious: Yes (Other)
  Sender: FDA-Public Use
  Company Number: CA-JNJFOC-20110812587

PATIENT
  Sex: Female
  Weight: 52 kg

DRUGS (1)
  1. REMICADE [Suspect]
     Indication: CROHN'S DISEASE
     Route: 042

REACTIONS (6)
  - PAIN [None]
  - NERVE INJURY [None]
  - MUSCULOSKELETAL CHEST PAIN [None]
  - APHAGIA [None]
  - HYPOPNOEA [None]
  - PAIN IN EXTREMITY [None]
